FAERS Safety Report 22103888 (Version 1)
Quarter: 2023Q1

REPORT INFORMATION
  Report Type: Spontaneous
  Country: JP (occurrence: None)
  Receive Date: 20230316
  Receipt Date: 20230316
  Transmission Date: 20230418
  Serious: Yes (Other)
  Sender: FDA-Public Use
  Company Number: 2023A060256

PATIENT
  Age: 60 Year
  Sex: Female
  Weight: 84 kg

DRUGS (17)
  1. FASENRA [Suspect]
     Active Substance: BENRALIZUMAB
     Indication: Asthma
     Dosage: DOSE UNKNOWN
     Route: 058
  2. TEZSPIRE [Concomitant]
     Active Substance: TEZEPELUMAB-EKKO
     Indication: Asthma
     Dosage: DOSE UNKNOWN
     Route: 058
  3. DUPILUMAB(GENETICAL RECOMBINATION) [Concomitant]
     Indication: Asthma
     Dosage: DOSE UNKNOWN
     Route: 065
  4. MEPOLIZUMAB(GENETICAL RECOMBINATION) [Concomitant]
     Indication: Asthma
     Dosage: DOSE UNKNOWN
     Route: 065
  5. PREDNISOLONE [Concomitant]
     Active Substance: PREDNISOLONE
     Dosage: NUMBER OF SEPARATE DOSAGES UNKNOWN
     Route: 048
  6. PREDNISOLONE [Concomitant]
     Active Substance: PREDNISOLONE
     Dosage: NUMBER OF SEPARATE DOSAGES UNKNOWN
     Route: 048
  7. PREDNISOLONE [Concomitant]
     Active Substance: PREDNISOLONE
     Dosage: NUMBER OF SEPARATE DOSAGES UNKNOWN
     Route: 048
  8. FLUTICASONE FUROATE\VILANTEROL TRIFENATATE [Concomitant]
     Active Substance: FLUTICASONE FUROATE\VILANTEROL TRIFENATATE
     Dosage: DOSE UNKNOWN
     Route: 048
  9. PRANLUKAST [Concomitant]
     Active Substance: PRANLUKAST
     Dosage: DOSE UNKNOWN
     Route: 048
  10. CONJUGATED ESTROGENS [Concomitant]
     Active Substance: ESTROGENS, CONJUGATED
     Dosage: DOSE UNKNOWN
     Route: 048
  11. MEDROXYPROGESTERONE ACETATE [Concomitant]
     Active Substance: MEDROXYPROGESTERONE ACETATE
     Dosage: DOSE UNKNOWN
     Route: 048
  12. BETAMETHASONE SODIUM PHOSPHATE [Concomitant]
     Active Substance: BETAMETHASONE SODIUM PHOSPHATE
     Dosage: DOSE UNKNOWN
     Route: 041
  13. FLUTICASONE PROPIONATE\FORMOTEROL FUMARATE [Concomitant]
     Active Substance: FLUTICASONE PROPIONATE\FORMOTEROL FUMARATE
     Dosage: DOSE UNKNOWN, 2 X 4
     Route: 048
  14. TIOTROPIUM BROMIDE HYDRATE [Concomitant]
     Dosage: DOSE UNKNOWN
     Route: 048
  15. PRANLUKAST HEMIHYDRATE [Concomitant]
     Active Substance: PRANLUKAST HEMIHYDRATE
     Dosage: DOSE UNKNOWN
     Route: 048
  16. THEOPHYLLINE [Concomitant]
     Active Substance: THEOPHYLLINE
     Dosage: DOSE UNKNOWN
     Route: 048
  17. BILASTINE [Concomitant]
     Active Substance: BILASTINE
     Dosage: DOSE UNKNOWN
     Route: 048

REACTIONS (5)
  - Diabetes mellitus [Unknown]
  - Headache [Unknown]
  - Adjustment disorder with depressed mood [Unknown]
  - Asthma [Unknown]
  - Eosinophil count increased [Unknown]
